FAERS Safety Report 8842382 (Version 2)
Quarter: 2012Q4

REPORT INFORMATION
  Report Type: 
  Country: US (occurrence: None)
  Receive Date: 20120116
  Receipt Date: 20121012
  Transmission Date: 20130627
  Serious: No
  Sender: FDA-Public Use
  Company Number: None

PATIENT
  Age: 49 Year
  Sex: Male
  Weight: 83.92 kg

DRUGS (2)
  1. METHYLPREDNISOLONE [Suspect]
  2. KENALOG [Suspect]

REACTIONS (4)
  - Headache [None]
  - Pyrexia [None]
  - Dizziness [None]
  - Neck pain [None]
